FAERS Safety Report 4384250-9 (Version None)
Quarter: 2004Q2

REPORT INFORMATION
  Report Type: 
  Country: None (occurrence: None)
  Receive Date: 20040624
  Receipt Date: 20040323
  Transmission Date: 20050107
  Serious: Yes (Disabling)
  Sender: FDA-Public Use
  Company Number: US-MERCK-0403USA02069

PATIENT
  Age: 66 Year
  Sex: Female
  Weight: 82 kg

DRUGS (17)
  1. ZOLOFT [Concomitant]
     Indication: ANXIETY
     Route: 065
  2. ALBUTEROL [Concomitant]
     Indication: ASTHMA
     Route: 055
  3. FOSAMAX [Suspect]
     Indication: OSTEOPENIA
     Route: 048
     Dates: start: 20031224, end: 20040301
  4. XANAX [Concomitant]
     Indication: SLEEP DISORDER
     Route: 065
  5. XANAX [Concomitant]
     Route: 065
  6. XANAX [Concomitant]
     Indication: ANXIETY
     Route: 065
  7. XANAX [Concomitant]
     Route: 065
  8. ZYRTEC-D 12 HOUR [Concomitant]
     Route: 065
     Dates: end: 20040322
  9. CLARINEX [Concomitant]
     Indication: HYPERSENSITIVITY
     Route: 048
  10. BENTYL [Concomitant]
     Route: 065
  11. PREMARIN [Concomitant]
     Indication: MENOPAUSAL SYMPTOMS
     Route: 065
     Dates: start: 19980101
  12. LESCOL XL [Concomitant]
     Indication: BLOOD CHOLESTEROL ABNORMAL
     Route: 065
  13. SYNTHROID [Concomitant]
     Indication: HYPOTHYROIDISM
     Route: 048
  14. PROVERA [Concomitant]
     Indication: MENOPAUSAL SYMPTOMS
     Route: 048
     Dates: start: 19980101
  15. ZOLOFT [Concomitant]
     Indication: IRRITABLE BOWEL SYNDROME
     Route: 065
  16. BEXTRA [Concomitant]
     Indication: ARTHRITIS
     Route: 065
  17. EFFEXOR XR [Concomitant]
     Indication: ANTIDEPRESSANT THERAPY
     Route: 065

REACTIONS (18)
  - ABDOMINAL PAIN UPPER [None]
  - BONE PAIN [None]
  - DYSGEUSIA [None]
  - DYSPEPSIA [None]
  - DYSPHAGIA [None]
  - EMOTIONAL DISTRESS [None]
  - ERUCTATION [None]
  - FAECES DISCOLOURED [None]
  - FEAR [None]
  - FEELING ABNORMAL [None]
  - FLATULENCE [None]
  - GASTRITIS [None]
  - HEADACHE [None]
  - INFLUENZA LIKE ILLNESS [None]
  - MYALGIA [None]
  - NAUSEA [None]
  - STOMACH DISCOMFORT [None]
  - WEIGHT INCREASED [None]
